FAERS Safety Report 13463463 (Version 2)
Quarter: 2017Q2

REPORT INFORMATION
  Report Type: Spontaneous
  Country: US (occurrence: US)
  Receive Date: 20170420
  Receipt Date: 20170619
  Transmission Date: 20170830
  Serious: No
  Sender: FDA-Public Use
  Company Number: US-PFIZER INC-2017174220

PATIENT
  Age: 90 Year
  Sex: Female
  Weight: 41.27 kg

DRUGS (2)
  1. IBRANCE [Suspect]
     Active Substance: PALBOCICLIB
     Indication: BREAST CANCER METASTATIC
     Dosage: 75 MG, CYCLIC (DAYS 1-21, EVERY 28 DAYS)
     Route: 048
     Dates: start: 20170222
  2. IBRANCE [Suspect]
     Active Substance: PALBOCICLIB
     Dosage: 75 MG, CYCLIC (DAYS 1-21 OF 28 DAYS)
     Route: 048
     Dates: start: 20170222

REACTIONS (5)
  - Drug dose omission [Unknown]
  - Oropharyngeal pain [Unknown]
  - Viral upper respiratory tract infection [Unknown]
  - Cough [Unknown]
  - Rhinorrhoea [Unknown]
